FAERS Safety Report 7344580-5 (Version None)
Quarter: 2011Q1

REPORT INFORMATION
  Report Type: 
  Country: None (occurrence: None)
  Receive Date: 20110310
  Receipt Date: 20110212
  Transmission Date: 20110831
  Serious: No
  Sender: FDA-Public Use
  Company Number: US-B.I. PHARMACEUTICALS,INC./RIDGEFIELD-2011-BP-05492BP

PATIENT
  Sex: Male

DRUGS (2)
  1. DIABETES MEDICINE [Concomitant]
     Indication: DIABETES MELLITUS
  2. SPIRIVA [Suspect]

REACTIONS (1)
  - BLOOD GLUCOSE INCREASED [None]
